FAERS Safety Report 4562422-8 (Version None)
Quarter: 2005Q1

REPORT INFORMATION
  Report Type: 
  Country: None (occurrence: None)
  Receive Date: 20050121
  Receipt Date: 20050105
  Transmission Date: 20050727
  Serious: Yes (Death)
  Sender: FDA-Public Use
  Company Number: 2005-SW-00001FI

PATIENT
  Age: 81 Year
  Sex: Male

DRUGS (5)
  1. ACTILYSE (ALTEPLASE) (AMV) [Suspect]
     Indication: CEREBROVASCULAR ACCIDENT
     Dosage: 63 MG, IV
     Route: 042
     Dates: start: 20041230, end: 20041230
  2. PERSANTIN [Suspect]
     Dosage: 200 MG 1 IN 24 HR), PO
     Route: 048
  3. ORMOX (ISOSORBIDE MONONITRATE) [Concomitant]
  4. NORVASC [Concomitant]
  5. PRIMASPAN (ACEYTLSALICYILC ACID) [Concomitant]

REACTIONS (5)
  - BRAIN COMPRESSION [None]
  - CEREBRAL HAEMORRHAGE [None]
  - CEREBRAL INFARCTION [None]
  - DISEASE RECURRENCE [None]
  - HYDROCEPHALUS [None]
